FAERS Safety Report 18706165 (Version 2)
Quarter: 2021Q1

REPORT INFORMATION
  Report Type: Spontaneous
  Country: US (occurrence: US)
  Receive Date: 20210106
  Receipt Date: 20210119
  Transmission Date: 20210419
  Serious: Yes (Other)
  Sender: FDA-Public Use
  Company Number: US-PFIZER INC-2021000069

PATIENT
  Age: 43 Year
  Sex: Male

DRUGS (1)
  1. IBUPROFEN. [Suspect]
     Active Substance: IBUPROFEN
     Dosage: UNK, DAILY

REACTIONS (2)
  - Tubulointerstitial nephritis [Recovering/Resolving]
  - Glomerulonephritis minimal lesion [Recovering/Resolving]
